FAERS Safety Report 5301575-0 (Version None)
Quarter: 2007Q2

REPORT INFORMATION
  Report Type: 
  Country: None (occurrence: None)
  Receive Date: 20070418
  Receipt Date: 20070411
  Transmission Date: 20071010
  Serious: Yes (Death, Other)
  Sender: FDA-Public Use
  Company Number: IE-ABBOTT-06P-229-0350647-00

PATIENT
  Sex: Female

DRUGS (6)
  1. HUMIRA [Suspect]
     Indication: RHEUMATOID ARTHRITIS
     Dates: start: 20051215, end: 20060904
  2. PACLITAXEL [Concomitant]
     Indication: DRUG USE FOR UNKNOWN INDICATION
  3. METHOTREXATE [Concomitant]
     Indication: DRUG USE FOR UNKNOWN INDICATION
     Dates: start: 20060209
  4. DOCETAXEL [Concomitant]
     Indication: DRUG USE FOR UNKNOWN INDICATION
  5. CARBOPLATIN [Concomitant]
     Indication: DRUG USE FOR UNKNOWN INDICATION
  6. CARBOPLATIN [Concomitant]
     Dosage: DOSE REDUCED

REACTIONS (4)
  - DYSPNOEA [None]
  - LUNG ADENOCARCINOMA METASTATIC [None]
  - METASTASES TO SPINE [None]
  - PNEUMONIA [None]
